FAERS Safety Report 16965255 (Version 2)
Quarter: 2019Q4

REPORT INFORMATION
  Report Type: Spontaneous
  Country: CH (occurrence: CH)
  Receive Date: 20191028
  Receipt Date: 20191126
  Transmission Date: 20200122
  Serious: Yes (Other)
  Sender: FDA-Public Use
  Company Number: CH-TEVA-2019-CH-1129234

PATIENT
  Sex: Female

DRUGS (5)
  1. CANGRELOR [Suspect]
     Active Substance: CANGRELOR
     Dosage: AN INFUSION OF 4 MICROG/KG/MIN
     Route: 041
     Dates: start: 2018
  2. HEPARIN [Suspect]
     Active Substance: HEPARIN SODIUM
     Indication: THROMBOTIC THROMBOCYTOPENIC PURPURA
     Route: 042
     Dates: start: 2010
  3. CLOPIDOGREL [Suspect]
     Active Substance: CLOPIDOGREL BISULFATE
     Indication: ANTIPLATELET THERAPY
     Route: 065
  4. HEPARIN [Suspect]
     Active Substance: HEPARIN SODIUM
     Indication: ANTICOAGULANT THERAPY
     Dosage: HEPARIN WAS AGAIN ADMINISTERED IN 2018 WITH CANGRELOR (TOTAL DOSE 18000.0IU)
     Route: 042
     Dates: start: 2018
  5. CANGRELOR [Suspect]
     Active Substance: CANGRELOR
     Dosage: IV BOLUS WAS FOLLOWED BY AN INFUSION
     Route: 040
     Dates: start: 2018

REACTIONS (5)
  - Off label use [Unknown]
  - Heparin-induced thrombocytopenia test positive [Not Recovered/Not Resolved]
  - Heparin-induced thrombocytopenia [Recovered/Resolved]
  - Platelet adhesiveness decreased [Recovered/Resolved]
  - Haemorrhage [Recovered/Resolved]

NARRATIVE: CASE EVENT DATE: 2010
